FAERS Safety Report 6852898-5 (Version None)
Quarter: 2010Q3

REPORT INFORMATION
  Report Type: 
  Country: None (occurrence: None)
  Receive Date: 20100717
  Receipt Date: 20071121
  Transmission Date: 20110219
  Serious: No
  Sender: FDA-Public Use
  Company Number: US-PFIZER INC-2007101031

PATIENT
  Sex: Female

DRUGS (3)
  1. CHANTIX [Suspect]
     Indication: SMOKING CESSATION THERAPY
     Route: 048
     Dates: start: 20070201, end: 20070201
  2. PROCARDIA XL [Concomitant]
     Indication: HYPERTENSION
  3. VALSARTAN [Concomitant]
     Indication: HYPERTENSION

REACTIONS (1)
  - AGITATION [None]
